FAERS Safety Report 20324958 (Version 1)
Quarter: 2022Q1

REPORT INFORMATION
  Report Type: Spontaneous
  Country: CA (occurrence: CA)
  Receive Date: 20220111
  Receipt Date: 20220111
  Transmission Date: 20220423
  Serious: Yes (Other)
  Sender: FDA-Public Use
  Company Number: CA-PFIZER INC-2018518605

PATIENT
  Age: 44 Year
  Sex: Female
  Weight: 63 kg

DRUGS (97)
  1. ARAVA [Suspect]
     Active Substance: LEFLUNOMIDE
     Dosage: UNK
     Route: 065
  2. HYDROXYCHLOROQUINE [Suspect]
     Active Substance: HYDROXYCHLOROQUINE
     Dosage: UNK
     Route: 065
  3. CANNABIS SATIVA FLOWERING TOP [Concomitant]
     Active Substance: CANNABIS SATIVA FLOWERING TOP
     Dosage: 1 GRAM, QD
  4. PANTOPRAZOLE SODIUM [Suspect]
     Active Substance: PANTOPRAZOLE SODIUM
     Dosage: UNK
     Route: 065
  5. PANTOPRAZOLE SODIUM [Suspect]
     Active Substance: PANTOPRAZOLE SODIUM
     Dosage: UNK, DAILY
     Route: 048
  6. AMITRIPTYLINE PAMOATE [Suspect]
     Active Substance: AMITRIPTYLINE PAMOATE
     Dosage: 75 MG, QD
     Route: 048
  7. VIMOVO [Suspect]
     Active Substance: ESOMEPRAZOLE MAGNESIUM\NAPROXEN
     Dosage: UNK
     Route: 065
  8. ESOMEPRAZOLE [Suspect]
     Active Substance: ESOMEPRAZOLE
     Dosage: UNK
     Route: 065
  9. LYRICA [Suspect]
     Active Substance: PREGABALIN
     Indication: Rheumatoid arthritis
     Dosage: 300 MG, 1X/DAY
     Route: 048
  10. LYRICA [Suspect]
     Active Substance: PREGABALIN
     Dosage: 150 MG, 2X/DAY
     Route: 048
  11. METHYLPREDNISOLONE ACETATE [Suspect]
     Active Substance: METHYLPREDNISOLONE ACETATE
     Dosage: UNK
  12. NAPROXEN [Suspect]
     Active Substance: NAPROXEN
     Dosage: 500 MILLIGRAM, BID
     Route: 048
     Dates: start: 2011
  13. NAPROXEN [Suspect]
     Active Substance: NAPROXEN
     Dosage: 500 MG, 2X/DAY
     Route: 048
  14. NAPROXEN [Suspect]
     Active Substance: NAPROXEN
     Dosage: 500 MG, BID
     Route: 048
  15. NAPROXEN [Suspect]
     Active Substance: NAPROXEN
     Dosage: 500 MILLIGRAM, BID
     Route: 048
  16. NAPROXEN [Suspect]
     Active Substance: NAPROXEN
     Dosage: 500 MILLIGRAM, BID
     Route: 048
  17. NAPROXEN [Suspect]
     Active Substance: NAPROXEN
     Dosage: 250 MG, BID
     Route: 048
  18. NAPROXEN [Suspect]
     Active Substance: NAPROXEN
     Dosage: 1000 MILLIGRAM, QD
     Route: 048
  19. AMITRIPTYLINE [Suspect]
     Active Substance: AMITRIPTYLINE
     Dosage: 75 MILLIGRAM, QD
     Route: 048
  20. METHOTREXATE SODIUM [Suspect]
     Active Substance: METHOTREXATE SODIUM
     Indication: Rheumatoid arthritis
     Dosage: 20 MG, 1/WEEK
     Route: 058
     Dates: start: 2008
  21. SULFASALAZINE [Suspect]
     Active Substance: SULFASALAZINE
     Indication: Rheumatoid arthritis
     Dosage: 1000 MG, 1X/DAY
     Route: 048
  22. SULFASALAZINE [Suspect]
     Active Substance: SULFASALAZINE
     Dosage: 1 G, QD (1 IN 24 HRS)
     Route: 048
     Dates: start: 20071221, end: 20180211
  23. SULFASALAZINE [Suspect]
     Active Substance: SULFASALAZINE
     Dosage: 1 GRAM, BID
     Route: 065
  24. SEPTRA [Suspect]
     Active Substance: SULFAMETHOXAZOLE\TRIMETHOPRIM
     Dosage: UNK
     Route: 065
  25. MELOXICAM [Suspect]
     Active Substance: MELOXICAM
     Dosage: UNK
     Route: 065
  26. MELOXICAM [Suspect]
     Active Substance: MELOXICAM
     Dosage: 150 MG, QD
     Route: 065
  27. ORENCIA [Suspect]
     Active Substance: ABATACEPT
     Indication: Rheumatoid arthritis
     Dosage: UNK
     Route: 065
  28. ORENCIA [Suspect]
     Active Substance: ABATACEPT
     Dosage: 750 MG
     Route: 042
  29. ORENCIA [Suspect]
     Active Substance: ABATACEPT
     Dosage: 125 MILLIGRAM, QD
     Route: 058
  30. TRIMETHOPRIM [Suspect]
     Active Substance: TRIMETHOPRIM
     Dosage: UNK
     Route: 065
  31. CODEINE [Concomitant]
     Active Substance: CODEINE
     Dosage: UNK UNK, QD
  32. CIMZIA [Suspect]
     Active Substance: CERTOLIZUMAB PEGOL
     Route: 065
  33. FOSAMAX [Suspect]
     Active Substance: ALENDRONATE SODIUM
     Route: 065
  34. HYDROXYCHLOROQUINE DIPHOSPHATE [Concomitant]
     Active Substance: HYDROXYCHLOROQUINE DIPHOSPHATE
  35. PLAQUENIL [Concomitant]
     Active Substance: HYDROXYCHLOROQUINE SULFATE
     Dosage: UNK
     Route: 065
  36. ADALIMUMAB [Suspect]
     Active Substance: ADALIMUMAB
     Indication: Drug therapy
     Dosage: 40 MG, UNK
     Route: 058
     Dates: start: 201008, end: 201312
  37. RANITIDINE [Suspect]
     Active Substance: RANITIDINE
     Dosage: UNK
  38. AZATHIOPRINE [Suspect]
     Active Substance: AZATHIOPRINE
     Indication: Rheumatoid arthritis
     Dosage: 150 MG, 2X/DAY
     Route: 048
  39. AZATHIOPRINE [Suspect]
     Active Substance: AZATHIOPRINE
     Dosage: 150 MG, UNK
     Route: 065
  40. HUMIRA [Suspect]
     Active Substance: ADALIMUMAB
     Indication: Rheumatoid arthritis
     Dosage: 40 MG, UNK
     Route: 058
     Dates: start: 201008, end: 201312
  41. HUMIRA [Suspect]
     Active Substance: ADALIMUMAB
     Indication: Drug therapy
  42. GOLD [Suspect]
     Active Substance: GOLD
     Dosage: UNK
  43. ACETAMINOPHEN\OXYCODONE HYDROCHLORIDE [Suspect]
     Active Substance: ACETAMINOPHEN\OXYCODONE HYDROCHLORIDE
     Dosage: UNK
     Route: 065
  44. LEVOTHYROXINE [Concomitant]
     Active Substance: LEVOTHYROXINE
     Dosage: 175 MICROGRAM, QD
  45. AMITRIPTYLINE HYDROCHLORIDE [Suspect]
     Active Substance: AMITRIPTYLINE HYDROCHLORIDE
     Dosage: 75 MG, EVERY 24 HOUR
     Route: 048
     Dates: start: 2011
  46. ENBREL [Suspect]
     Active Substance: ETANERCEPT
     Indication: Rheumatoid arthritis
     Dosage: 50 MG, WEEKLY
     Route: 058
     Dates: start: 200812, end: 201007
  47. ENBREL [Suspect]
     Active Substance: ETANERCEPT
     Dosage: 50 MG, QWK 1095 D
     Route: 058
     Dates: end: 201807
  48. ENBREL [Suspect]
     Active Substance: ETANERCEPT
     Dosage: 50 MILLIGRAM,
     Route: 058
  49. OXYCODONE [Suspect]
     Active Substance: OXYCODONE
     Dosage: UNK
     Route: 065
  50. OXYCODONE [Suspect]
     Active Substance: OXYCODONE
     Route: 065
  51. AMITRIPTYLINE HYDROCHLORIDE [Suspect]
     Active Substance: AMITRIPTYLINE HYDROCHLORIDE
     Dosage: 75 MG, QD
     Route: 048
     Dates: start: 2011
  52. BACTRIM [Suspect]
     Active Substance: SULFAMETHOXAZOLE\TRIMETHOPRIM
     Dosage: UNK
     Route: 065
  53. ALENDRONATE SODIUM [Suspect]
     Active Substance: ALENDRONATE SODIUM
     Dosage: UNK
     Route: 065
  54. AMOXICILLIN [Suspect]
     Active Substance: AMOXICILLIN
     Dosage: UNK
     Route: 065
  55. SULFAMETHOXAZOLE\TRIMETHOPRIM [Suspect]
     Active Substance: SULFAMETHOXAZOLE\TRIMETHOPRIM
     Dosage: UNK
     Route: 065
  56. ALENDRONATE SODIUM [Suspect]
     Active Substance: ALENDRONATE SODIUM
     Dosage: UNK
     Route: 065
  57. ACETAMINOPHEN\OXYCODONE HYDROCHLORIDE [Suspect]
     Active Substance: ACETAMINOPHEN\OXYCODONE HYDROCHLORIDE
     Dosage: UNK
     Route: 065
  58. IMURAN [Suspect]
     Active Substance: AZATHIOPRINE
     Dosage: 150 MG, UNK
     Route: 065
  59. SIMPONI [Suspect]
     Active Substance: GOLIMUMAB
     Dosage: UNK
     Route: 058
  60. ESOMEPRAZOLE MAGNESIUM [Suspect]
     Active Substance: ESOMEPRAZOLE MAGNESIUM
     Indication: Rheumatoid arthritis
     Dosage: UNK
     Route: 065
  61. RITUXIMAB [Suspect]
     Active Substance: RITUXIMAB
     Indication: Rheumatoid arthritis
     Dosage: UNK
     Route: 042
  62. RITUXIMAB [Suspect]
     Active Substance: RITUXIMAB
     Dosage: UNK
     Route: 042
  63. RITUXIMAB [Suspect]
     Active Substance: RITUXIMAB
     Dosage: UNK
     Route: 065
  64. METHYLPREDNISOLONE SODIUM SUCCINATE [Suspect]
     Active Substance: METHYLPREDNISOLONE SODIUM SUCCINATE
     Indication: Rheumatoid arthritis
     Dosage: UNK
     Route: 014
  65. RANITIDINE [Suspect]
     Active Substance: RANITIDINE
     Dosage: UNK
     Route: 065
  66. RANITIDINE [Suspect]
     Active Substance: RANITIDINE
     Dosage: 300 MILLIGRAM, QD
     Route: 048
     Dates: start: 2012
  67. RANITIDINE [Suspect]
     Active Substance: RANITIDINE
     Dosage: 150 MG, TWO EVERY ONE DAY
     Route: 048
  68. ACTEMRA [Suspect]
     Active Substance: TOCILIZUMAB
     Indication: Rheumatoid arthritis
     Dosage: 160 MILLIGRAM, QWK
     Route: 058
  69. CELEBREX [Concomitant]
     Active Substance: CELECOXIB
     Dosage: UNK
     Route: 065
  70. CELEBREX [Concomitant]
     Active Substance: CELECOXIB
     Dosage: UNK
     Route: 065
  71. XELJANZ [Suspect]
     Active Substance: TOFACITINIB CITRATE
     Indication: Rheumatoid arthritis
     Dosage: 10 MG, QD
     Route: 048
  72. XELJANZ [Suspect]
     Active Substance: TOFACITINIB CITRATE
     Dosage: 10 MG, 1X/DAY
     Route: 048
  73. XELJANZ [Suspect]
     Active Substance: TOFACITINIB CITRATE
     Dosage: 5 MG, BID
     Route: 048
     Dates: start: 20140927
  74. XELJANZ [Suspect]
     Active Substance: TOFACITINIB CITRATE
     Dosage: 5 MG, 2X/DAY
     Route: 048
     Dates: start: 20140927
  75. DEXILANT [Concomitant]
     Active Substance: DEXLANSOPRAZOLE
     Dosage: 60 MILLIGRAM, QD
     Route: 048
  76. MELOXICAM [Suspect]
     Active Substance: MELOXICAM
     Indication: Rheumatoid arthritis
     Dosage: UNK
     Route: 065
  77. MELOXICAM [Suspect]
     Active Substance: MELOXICAM
     Dosage: 150 MILLIGRAM, QD
     Route: 065
  78. ACETAMINOPHEN [Suspect]
     Active Substance: ACETAMINOPHEN
     Dosage: UNK
     Route: 065
  79. ACETAMINOPHEN [Suspect]
     Active Substance: ACETAMINOPHEN
     Dosage: UNK
     Route: 065
  80. DEPO-MEDROL [Suspect]
     Active Substance: METHYLPREDNISOLONE ACETATE
     Indication: Rheumatoid arthritis
     Dosage: UNK
     Route: 014
  81. REMICADE [Suspect]
     Active Substance: INFLIXIMAB
     Dosage: UNK
     Route: 042
  82. PANTOPRAZOLE [Suspect]
     Active Substance: PANTOPRAZOLE
     Dosage: UNK
     Route: 048
  83. NAPROXEN SODIUM [Suspect]
     Active Substance: NAPROXEN SODIUM
     Dosage: 500 MG, TWO EVERY ONE DAY
     Route: 048
  84. NAPROXEN SODIUM [Suspect]
     Active Substance: NAPROXEN SODIUM
     Dosage: 250 MG, 2X/DAY
     Route: 048
  85. NAPROXEN SODIUM [Suspect]
     Active Substance: NAPROXEN SODIUM
     Dosage: 1000 MG, 1X/DAY
     Route: 048
  86. NAPROXEN SODIUM [Suspect]
     Active Substance: NAPROXEN SODIUM
     Dosage: UNK
     Route: 048
  87. NAPROXEN SODIUM [Suspect]
     Active Substance: NAPROXEN SODIUM
     Dosage: 500 MG, TWO EVERY ONE DAY
     Route: 048
     Dates: start: 2011
  88. PREDNISONE [Suspect]
     Active Substance: PREDNISONE
     Indication: Rheumatoid arthritis
     Dosage: 150 MG, QD
     Route: 065
  89. PREDNISONE [Suspect]
     Active Substance: PREDNISONE
     Dosage: 15 MG, QD
     Route: 065
     Dates: start: 2012
  90. PREDNISONE [Suspect]
     Active Substance: PREDNISONE
     Dosage: UNK
     Route: 048
  91. ALLOPURINOL [Suspect]
     Active Substance: ALLOPURINOL
     Dosage: 75 MILLIGRAM, QD
     Route: 048
  92. FOLIC ACID [Concomitant]
     Active Substance: FOLIC ACID
     Dosage: UNK
     Route: 065
  93. CELECOXIB [Concomitant]
     Active Substance: CELECOXIB
     Dosage: UNK
     Route: 065
  94. PREDNISONE [Suspect]
     Active Substance: PREDNISONE
     Indication: Rheumatoid arthritis
     Dosage: UNK
     Route: 065
  95. PREDNISONE [Suspect]
     Active Substance: PREDNISONE
     Dosage: 15 MILLIGRAM, QD
     Route: 065
     Dates: start: 2012
  96. ACETAMINOPHEN [Suspect]
     Active Substance: ACETAMINOPHEN
     Dosage: UNK
     Route: 065
  97. ALENDRONIC ACID [Suspect]
     Active Substance: ALENDRONIC ACID
     Dosage: UNK
     Route: 048

REACTIONS (44)
  - Musculoskeletal pain [Unknown]
  - Off label use [Unknown]
  - Haemoglobin decreased [Unknown]
  - Back pain [Not Recovered/Not Resolved]
  - Joint swelling [Unknown]
  - Pruritus [Unknown]
  - Conjunctivitis [Unknown]
  - Upper respiratory tract infection [Unknown]
  - Joint range of motion decreased [Unknown]
  - Rash maculo-papular [Unknown]
  - White blood cell count decreased [Unknown]
  - Inflammation [Not Recovered/Not Resolved]
  - C-reactive protein increased [Unknown]
  - Hand deformity [Unknown]
  - Rheumatoid arthritis [Unknown]
  - Nausea [Unknown]
  - Muscular weakness [Unknown]
  - Dizziness [Unknown]
  - Drug ineffective [Unknown]
  - Infection [Unknown]
  - Deformity [Unknown]
  - Abdominal pain [Unknown]
  - Skin ulcer [Unknown]
  - Bone density decreased [Unknown]
  - Diarrhoea [Unknown]
  - Pneumonia [Not Recovered/Not Resolved]
  - Tenosynovitis [Unknown]
  - Arthralgia [Not Recovered/Not Resolved]
  - Pain [Unknown]
  - Pulmonary toxicity [Unknown]
  - Arthritis [Not Recovered/Not Resolved]
  - Rash pruritic [Unknown]
  - Fatigue [Unknown]
  - Myalgia [Unknown]
  - Dyspnoea [Unknown]
  - Drug intolerance [Unknown]
  - Rash [Not Recovered/Not Resolved]
  - Liver disorder [Unknown]
  - Peripheral swelling [Unknown]
  - Allergy to chemicals [Unknown]
  - Feeling abnormal [Unknown]
  - Erythema [Unknown]
  - Therapeutic product effect decreased [Unknown]
  - Treatment failure [Unknown]

NARRATIVE: CASE EVENT DATE: 20080101
